FAERS Safety Report 15202631 (Version 1)
Quarter: 2018Q4

REPORT INFORMATION
  Report Type: Spontaneous
  Country: US (occurrence: US)
  Receive Date: 20180726
  Receipt Date: 20180726
  Transmission Date: 20190204
  Serious: No
  Sender: FDA-Public Use
  Company Number: US-SA-2018SA197107

PATIENT
  Sex: Male

DRUGS (1)
  1. ROLAIDS EXTRA STRENGTH FRUIT [Suspect]
     Active Substance: CALCIUM CARBONATE\MAGNESIUM HYDROXIDE
     Indication: PRODUCT USED FOR UNKNOWN INDICATION
     Dosage: UNK
     Dates: start: 20180705

REACTIONS (2)
  - Product physical issue [Unknown]
  - Product contamination physical [Unknown]
